FAERS Safety Report 9175145 (Version 1)
Quarter: 2013Q1

REPORT INFORMATION
  Report Type: Spontaneous
  Country: PL (occurrence: PL)
  Receive Date: 20130320
  Receipt Date: 20130320
  Transmission Date: 20140127
  Serious: Yes (Hospitalization)
  Sender: FDA-Public Use
  Company Number: PL-BRISTOL-MYERS SQUIBB COMPANY-18700781

PATIENT
  Age: 60 Year
  Sex: Female
  Weight: 60 kg

DRUGS (4)
  1. GLUCOPHAGE [Suspect]
     Dates: start: 20120730
  2. HALOPERIDOL [Suspect]
     Dates: start: 20120730
  3. OLANZAPINE [Suspect]
     Dates: start: 20120730
  4. APAP [Suspect]
     Dates: start: 20120730

REACTIONS (1)
  - Somnolence [Recovered/Resolved]
